FAERS Safety Report 15761309 (Version 1)
Quarter: 2018Q4

REPORT INFORMATION
  Report Type: Spontaneous
  Country: US (occurrence: US)
  Receive Date: 20181226
  Receipt Date: 20181226
  Transmission Date: 20190205
  Serious: Yes (Disabling)
  Sender: FDA-Public Use
  Company Number: None

PATIENT
  Age: 54 Year
  Sex: Female
  Weight: 71.1 kg

DRUGS (1)
  1. DIAL ANTIBACTERIAL HAND WASH [Suspect]
     Active Substance: BENZETHONIUM CHLORIDE
     Indication: THERAPEUTIC SKIN CARE TOPICAL
     Route: 061
     Dates: start: 20181221, end: 20181222

REACTIONS (3)
  - Application site rash [None]
  - Application site swelling [None]
  - Application site erythema [None]

NARRATIVE: CASE EVENT DATE: 20181222
